FAERS Safety Report 4690822-4 (Version None)
Quarter: 2005Q2

REPORT INFORMATION
  Report Type: 
  Country: None (occurrence: None)
  Receive Date: 20050615
  Receipt Date: 20050608
  Transmission Date: 20051028
  Serious: Yes (Death, Other)
  Sender: FDA-Public Use
  Company Number: FR-BRISTOL-MYERS SQUIBB COMPANY-13002183

PATIENT
  Age: 55 Year
  Sex: Male
  Weight: 69 kg

DRUGS (5)
  1. ENDOXAN [Suspect]
     Indication: NON-HODGKIN'S LYMPHOMA
     Route: 042
     Dates: start: 20050502, end: 20050506
  2. BLEOMYCIN SULFATE [Suspect]
     Indication: NON-HODGKIN'S LYMPHOMA
     Route: 042
     Dates: start: 20050502, end: 20050502
  3. ELDISINE [Suspect]
     Indication: NON-HODGKIN'S LYMPHOMA
     Route: 042
     Dates: start: 20050502, end: 20050502
  4. ADRIAMYCIN PFS [Suspect]
     Indication: NON-HODGKIN'S LYMPHOMA
     Route: 042
     Dates: start: 20050502, end: 20050506
  5. PREDNISONE TAB [Concomitant]
     Indication: NON-HODGKIN'S LYMPHOMA
     Route: 042
     Dates: start: 20050502

REACTIONS (5)
  - BLOOD PRESSURE DECREASED [None]
  - DEATH [None]
  - PANCYTOPENIA [None]
  - PYREXIA [None]
  - TACHYCARDIA [None]
